FAERS Safety Report 6592972-4 (Version None)
Quarter: 2010Q1

REPORT INFORMATION
  Report Type: 
  Country: None (occurrence: None)
  Receive Date: 20100222
  Receipt Date: 20100212
  Transmission Date: 20100710
  Serious: Yes (Hospitalization)
  Sender: FDA-Public Use
  Company Number: JP-BRISTOL-MYERS SQUIBB COMPANY-14774533

PATIENT
  Age: 41 Year
  Weight: 54 kg

DRUGS (14)
  1. BRIPLATIN INJ [Suspect]
     Indication: CERVIX CARCINOMA RECURRENT
     Dosage: C1:15JUN09(80MG) C2:13JUL09(80MG) C3:10AUG09(80MG) C4:17SEP09(80MG) C7:7DEC09(80MG)
     Route: 042
     Dates: start: 20090615, end: 20100118
  2. S-1 [Suspect]
     Indication: CERVIX CARCINOMA RECURRENT
     Dosage: C1:15JUN09-15JUN(120MG),C2:13JUL(100MG/D),C3:10AUG-23AUG(100MG),C4:17SEP(100/D),C8:04JAN10-17JAN10
     Route: 048
     Dates: start: 20090615, end: 20100118
  3. PRIMPERAN [Suspect]
     Indication: NAUSEA
     Route: 048
     Dates: start: 20090622, end: 20100118
  4. CHLOMY-P [Concomitant]
     Indication: VAGINAL DISCHARGE
     Dosage: INTRAVAGINAL
     Route: 067
     Dates: start: 20090629
  5. FLAGYL [Concomitant]
     Indication: VAGINAL DISCHARGE
     Dosage: INTRAVAGINAL
     Dates: start: 20090629
  6. RED BLOOD CELLS [Concomitant]
     Indication: HAEMOGLOBIN
     Dosage: FREQ:TWICE
     Route: 041
     Dates: start: 20090827, end: 20090831
  7. AZUNOL [Concomitant]
     Indication: STOMATITIS
     Dosage: AZUNOL GARGLE
     Route: 048
     Dates: start: 20090817, end: 20090828
  8. AZUNOL [Concomitant]
     Indication: CHEILITIS
     Dosage: AZUNOL GARGLE
     Route: 048
     Dates: start: 20090817, end: 20090828
  9. GASLON N [Concomitant]
     Indication: STOMATITIS
     Dosage: GASLON N-OD,02JUL09 TO 09SEP09
     Route: 048
     Dates: start: 20090730
  10. GASLON N [Concomitant]
     Indication: CHEILITIS
     Dosage: GASLON N-OD,02JUL09 TO 09SEP09
     Route: 048
     Dates: start: 20090730
  11. APHTASOLON [Concomitant]
     Indication: STOMATITIS
     Route: 048
     Dates: start: 20090817, end: 20090828
  12. APHTASOLON [Concomitant]
     Indication: CHEILITIS
     Route: 048
     Dates: start: 20090817, end: 20090828
  13. NAIXAN [Concomitant]
     Indication: PYREXIA
     Route: 048
     Dates: start: 20091228
  14. SELBEX [Concomitant]
     Indication: PROPHYLAXIS
     Route: 048
     Dates: start: 20091228

REACTIONS (2)
  - EMBOLISM VENOUS [None]
  - EXTRAPYRAMIDAL DISORDER [None]
